FAERS Safety Report 11785298 (Version 1)
Quarter: 2015Q4

REPORT INFORMATION
  Report Type: Report from Study
  Country: US (occurrence: US)
  Receive Date: 20151130
  Receipt Date: 20151130
  Transmission Date: 20160305
  Serious: Yes (Other)
  Sender: FDA-Public Use
  Company Number: PHEH2015US009615

PATIENT
  Sex: Female
  Weight: 79.83 kg

DRUGS (8)
  1. GILENYA [Suspect]
     Active Substance: FINGOLIMOD HYDROCHLORIDE
     Indication: RELAPSING-REMITTING MULTIPLE SCLEROSIS
     Dosage: 0.5 MG, QD
     Route: 048
     Dates: start: 20140402
  2. VITAMIN D [Concomitant]
     Active Substance: CHOLECALCIFEROL
     Indication: PRODUCT USED FOR UNKNOWN INDICATION
     Dosage: UNK
     Route: 065
  3. MULTIPLE VITAMINS [Concomitant]
     Active Substance: VITAMINS
     Indication: PRODUCT USED FOR UNKNOWN INDICATION
     Dosage: UNK
     Route: 065
  4. ERGOCALCIFEROL. [Concomitant]
     Active Substance: ERGOCALCIFEROL
     Indication: PRODUCT USED FOR UNKNOWN INDICATION
     Dosage: UNK
     Route: 065
  5. PROZAC [Concomitant]
     Active Substance: FLUOXETINE HYDROCHLORIDE
     Indication: PRODUCT USED FOR UNKNOWN INDICATION
     Dosage: UNK
     Route: 065
  6. MECLIZINE [Concomitant]
     Active Substance: MECLIZINE\MECLIZINE HYDROCHLORIDE
     Indication: PRODUCT USED FOR UNKNOWN INDICATION
     Dosage: UNK
     Route: 065
  7. RITALIN [Concomitant]
     Active Substance: METHYLPHENIDATE HYDROCHLORIDE
     Indication: FATIGUE
     Dosage: UNK
     Route: 065
  8. PRILOSEC [Concomitant]
     Active Substance: OMEPRAZOLE MAGNESIUM
     Indication: PRODUCT USED FOR UNKNOWN INDICATION
     Dosage: UNK
     Route: 065

REACTIONS (29)
  - Gait disturbance [Unknown]
  - Multiple sclerosis relapse [Unknown]
  - Cognitive disorder [Unknown]
  - Urinary tract disorder [Unknown]
  - Decreased vibratory sense [Unknown]
  - Pain in extremity [Unknown]
  - Muscle spasticity [Unknown]
  - Fall [Unknown]
  - Central nervous system lesion [Unknown]
  - Coordination abnormal [Unknown]
  - Anxiety [Unknown]
  - Sensory disturbance [Unknown]
  - Urinary incontinence [Unknown]
  - Sleep disorder [Unknown]
  - Peroneal nerve palsy [Unknown]
  - Balance disorder [Unknown]
  - Musculoskeletal stiffness [Unknown]
  - Depression [Unknown]
  - Motor dysfunction [Unknown]
  - Nystagmus [Unknown]
  - Depressed mood [Unknown]
  - Fatigue [Unknown]
  - Romberg test positive [Unknown]
  - Neck pain [Unknown]
  - Irritability [Unknown]
  - Nocturia [Unknown]
  - Dizziness [Unknown]
  - Gingival disorder [Unknown]
  - Weight increased [Unknown]
